FAERS Safety Report 5924761-5 (Version None)
Quarter: 2008Q4

REPORT INFORMATION
  Report Type: 
  Country: None (occurrence: None)
  Receive Date: 20081017
  Receipt Date: 20081006
  Transmission Date: 20090506
  Serious: Yes (Hospitalization)
  Sender: FDA-Public Use
  Company Number: 230352K08USA

PATIENT
  Age: 49 Year
  Sex: Male
  Weight: 79 kg

DRUGS (11)
  1. REBIF [Suspect]
     Indication: MULTIPLE SCLEROSIS
     Dosage: 44 MCG, 3 IN 1 WEEKS, SUBCUTANEOUS
     Route: 058
     Dates: start: 20070618
  2. ADVAIR (SERETIDE) [Concomitant]
  3. ALBUTEROL (SALBUTAMOL /00139501/) [Concomitant]
  4. SPIRIVA INHALER (TIOTROPIUM BROMIDE) [Concomitant]
  5. MIRAPEX [Concomitant]
  6. HYDROCODONE (HYDROCODONE) [Concomitant]
  7. PHENYTOIN SODIUM [Concomitant]
  8. PREDNISONE (PREDNISONE /00044701/) [Concomitant]
  9. CLONAZEPAM [Concomitant]
  10. CITROPAM (ALL OTHER THERAPEUTIC PRODUCTS) [Concomitant]
  11. ADVIL [Concomitant]

REACTIONS (4)
  - CONDITION AGGRAVATED [None]
  - HEART RATE DECREASED [None]
  - INFLUENZA LIKE ILLNESS [None]
  - MULTIPLE SCLEROSIS [None]
